FAERS Safety Report 8278998-3 (Version None)
Quarter: 2012Q2

REPORT INFORMATION
  Report Type: 
  Country: None (occurrence: None)
  Receive Date: 20120412
  Receipt Date: 20110607
  Transmission Date: 20120825
  Serious: No
  Sender: FDA-Public Use
  Company Number: US-ASTRAZENECA-2011SE35015

PATIENT
  Age: 69 Year
  Sex: Female
  Weight: 61.2 kg

DRUGS (2)
  1. RAMIPRIL [Concomitant]
     Indication: BLOOD PRESSURE ABNORMAL
     Route: 048
  2. NEXIUM [Suspect]
     Indication: GASTROOESOPHAGEAL REFLUX DISEASE
     Route: 048
     Dates: start: 20050101

REACTIONS (8)
  - ABDOMINAL RIGIDITY [None]
  - NAUSEA [None]
  - FLATULENCE [None]
  - OSTEOPOROSIS [None]
  - ABDOMINAL PAIN [None]
  - DIARRHOEA [None]
  - SOMNOLENCE [None]
  - CONSTIPATION [None]
